FAERS Safety Report 6508645-X (Version None)
Quarter: 2009Q4

REPORT INFORMATION
  Report Type: 
  Country: None (occurrence: None)
  Receive Date: 20091221
  Receipt Date: 20091209
  Transmission Date: 20100525
  Serious: Yes (Life-Threatening, Hospitalization)
  Sender: FDA-Public Use
  Company Number: JP-EISAI INC.-E2020-01610-SPO-JP

PATIENT
  Sex: Female
  Weight: 56 kg

DRUGS (8)
  1. ARICEPT [Suspect]
     Indication: DEMENTIA ALZHEIMER'S TYPE
     Route: 048
     Dates: end: 20070908
  2. ACECOL (TEMOCAPRIL) [Concomitant]
     Indication: HYPERTENSION
     Route: 048
  3. MAINTATE [Concomitant]
  4. CONIEL [Concomitant]
     Route: 048
  5. ADALAT [Concomitant]
     Indication: HYPERTENSION
     Route: 048
  6. AMLODIN [Concomitant]
     Route: 048
  7. ASPIRIN [Concomitant]
     Route: 048
  8. DIART [Concomitant]

REACTIONS (3)
  - LONG QT SYNDROME [None]
  - SICK SINUS SYNDROME [None]
  - TORSADE DE POINTES [None]
